FAERS Safety Report 5364974-7 (Version None)
Quarter: 2007Q2

REPORT INFORMATION
  Report Type: 
  Country: None (occurrence: None)
  Receive Date: 20070621
  Receipt Date: 20070613
  Transmission Date: 20071010
  Serious: Yes (Other)
  Sender: FDA-Public Use
  Company Number: US-JNJFOC-20070603728

PATIENT

DRUGS (2)
  1. FENTANYL TRANSDERMAL SYSTEM [Suspect]
     Indication: PAIN MANAGEMENT
     Route: 062
  2. OPIOID [Concomitant]
     Indication: PAIN MANAGEMENT
     Route: 042

REACTIONS (2)
  - DELIRIUM [None]
  - DRUG DISPENSING ERROR [None]
